FAERS Safety Report 13063397 (Version 3)
Quarter: 2017Q1

REPORT INFORMATION
  Report Type: Spontaneous
  Country: IT (occurrence: IT)
  Receive Date: 20161227
  Receipt Date: 20170331
  Transmission Date: 20170428
  Serious: Yes (Other)
  Sender: FDA-Public Use
  Company Number: IT-SUN PHARMACEUTICAL INDUSTRIES LTD-2016RR-129797

PATIENT
  Age: 52 Year
  Sex: Male

DRUGS (6)
  1. HUMALOG [Concomitant]
     Active Substance: INSULIN LISPRO
     Indication: PRODUCT USED FOR UNKNOWN INDICATION
     Dosage: 18 DF
     Route: 058
  2. LANTUS [Concomitant]
     Active Substance: INSULIN GLARGINE
     Indication: PRODUCT USED FOR UNKNOWN INDICATION
     Dosage: 22 DF
     Route: 058
  3. RISPERIDONE. [Suspect]
     Active Substance: RISPERIDONE
     Indication: DRUG ABUSE
     Dosage: 4 DF
     Route: 048
     Dates: start: 20161115, end: 20161115
  4. TACHIDOL [Suspect]
     Active Substance: ACETAMINOPHEN\CODEINE PHOSPHATE
     Indication: DRUG ABUSE
     Dosage: 4 DF TOTAL
     Route: 048
     Dates: start: 20161115, end: 20161115
  5. ALPRAZOLAM. [Suspect]
     Active Substance: ALPRAZOLAM
     Indication: DRUG ABUSE
     Dosage: 20 MG TOTAL
     Route: 048
     Dates: start: 20161115, end: 20161115
  6. XANAX [Suspect]
     Active Substance: ALPRAZOLAM
     Indication: DRUG ABUSE
     Dosage: 1 DF TOTAL
     Route: 048
     Dates: start: 20161115, end: 20161115

REACTIONS (3)
  - Drug abuse [Recovering/Resolving]
  - Asthenia [Recovering/Resolving]
  - Slow speech [Recovering/Resolving]

NARRATIVE: CASE EVENT DATE: 20161116
